FAERS Safety Report 11146667 (Version 1)
Quarter: 2015Q2

REPORT INFORMATION
  Report Type: Spontaneous
  Country: MY (occurrence: MY)
  Receive Date: 20150528
  Receipt Date: 20150528
  Transmission Date: 20150821
  Serious: Yes (Death, Other)
  Sender: FDA-Public Use
  Company Number: PHHY2015MY060153

PATIENT
  Age: 60 Year
  Sex: Female

DRUGS (6)
  1. SALINE [Suspect]
     Active Substance: SODIUM CHLORIDE
     Indication: HYPERCALCAEMIA
     Route: 041
  2. CALCITONIN, SALMON [Suspect]
     Active Substance: CALCITONIN SALMON
     Indication: HYPERCALCAEMIA
     Route: 058
  3. HYDROCORTISONE. [Suspect]
     Active Substance: HYDROCORTISONE
     Indication: HYPERCALCAEMIA
     Route: 042
  4. PAMIDRONATE [Suspect]
     Active Substance: PAMIDRONATE DISODIUM
     Indication: HYPERCALCAEMIA
     Route: 042
  5. ATENOLOL. [Concomitant]
     Active Substance: ATENOLOL
     Indication: HYPERTENSION
     Route: 065
  6. NIFEDIPINE. [Concomitant]
     Active Substance: NIFEDIPINE
     Indication: HYPERTENSION
     Route: 065

REACTIONS (7)
  - General physical health deterioration [Unknown]
  - Blood calcium increased [Unknown]
  - Somnolence [Unknown]
  - Drug ineffective [Unknown]
  - Death [Fatal]
  - Hypotension [Unknown]
  - Arthralgia [Unknown]
